FAERS Safety Report 5974201-5 (Version None)
Quarter: 2008Q4

REPORT INFORMATION
  Report Type: 
  Country: None (occurrence: None)
  Receive Date: 20081125
  Receipt Date: 20081110
  Transmission Date: 20090506
  Serious: Yes (Other)
  Sender: FDA-Public Use
  Company Number: JP-GDP-08404962

PATIENT
  Sex: Male
  Weight: 45 kg

DRUGS (1)
  1. DIFFERIN [Suspect]
     Indication: ACNE
     Dosage: (1 DF QD TOPICAL)
     Dates: start: 20081026, end: 20081028

REACTIONS (10)
  - ACNE [None]
  - CONDITION AGGRAVATED [None]
  - DERMATITIS [None]
  - ERYTHEMA [None]
  - EYELID PAIN [None]
  - PRURITUS [None]
  - RASH PUSTULAR [None]
  - SKIN EXFOLIATION [None]
  - SKIN LESION [None]
  - SWELLING FACE [None]
